FAERS Safety Report 20901913 (Version 5)
Quarter: 2025Q1

REPORT INFORMATION
  Report Type: Report from Study
  Country: CA (occurrence: CA)
  Receive Date: 20220601
  Receipt Date: 20250203
  Transmission Date: 20250409
  Serious: Yes (Other)
  Sender: TAKEDA
  Company Number: CA-TAKEDA-2022TUS036270

PATIENT
  Age: 31 Year
  Sex: Male
  Weight: 82.7 kg

DRUGS (7)
  1. VEDOLIZUMAB [Suspect]
     Active Substance: VEDOLIZUMAB
     Indication: Colitis ulcerative
  2. VEDOLIZUMAB [Suspect]
     Active Substance: VEDOLIZUMAB
     Indication: Pouchitis
     Dosage: 300 MILLIGRAM, Q4WEEKS
     Dates: start: 20220627
  3. VEDOLIZUMAB [Suspect]
     Active Substance: VEDOLIZUMAB
     Dosage: 300 MILLIGRAM, Q4WEEKS
  4. VEDOLIZUMAB [Suspect]
     Active Substance: VEDOLIZUMAB
     Dosage: 300 MILLIGRAM, Q4WEEKS
     Dates: end: 20241008
  5. BUDESONIDE [Concomitant]
     Active Substance: BUDESONIDE
  6. MELATONIN [Concomitant]
     Active Substance: MELATONIN
  7. IMODIUM [Concomitant]
     Active Substance: LOPERAMIDE HYDROCHLORIDE

REACTIONS (5)
  - Colitis ulcerative [Unknown]
  - Gastrointestinal anastomotic stenosis [Unknown]
  - Off label use [Unknown]
  - Drug ineffective [Unknown]
  - Anal pruritus [Unknown]

NARRATIVE: CASE EVENT DATE: 20220627
